FAERS Safety Report 12073367 (Version 1)
Quarter: 2016Q1

REPORT INFORMATION
  Report Type: Spontaneous
  Country: US (occurrence: US)
  Receive Date: 20160212
  Receipt Date: 20160212
  Transmission Date: 20160526
  Serious: Yes (Disabling)
  Sender: FDA-Public Use
  Company Number: US-BEH-2016058690

PATIENT
  Sex: Female
  Weight: 117 kg

DRUGS (23)
  1. NOVOLOG [Concomitant]
     Active Substance: INSULIN ASPART
  2. MELATONIN [Concomitant]
     Active Substance: MELATONIN
  3. DIPHENHYDRAMINE. [Concomitant]
     Active Substance: DIPHENHYDRAMINE
  4. METOPROLOL. [Concomitant]
     Active Substance: METOPROLOL
  5. LIDODERM [Concomitant]
     Active Substance: LIDOCAINE
  6. VALSARTAN. [Concomitant]
     Active Substance: VALSARTAN
  7. SENOKOT-S [Concomitant]
     Active Substance: DOCUSATE SODIUM\SENNOSIDES
  8. NITROSTAT [Concomitant]
     Active Substance: NITROGLYCERIN
  9. HIZENTRA [Suspect]
     Active Substance: HUMAN IMMUNOGLOBULIN G
     Route: 058
  10. SIMVASTATIN. [Concomitant]
     Active Substance: SIMVASTATIN
  11. MIRALAX [Concomitant]
     Active Substance: POLYETHYLENE GLYCOL 3350
  12. HIZENTRA [Suspect]
     Active Substance: HUMAN IMMUNOGLOBULIN G
     Indication: IMMUNODEFICIENCY COMMON VARIABLE
     Route: 058
  13. VITAMIN B12 [Concomitant]
     Active Substance: CYANOCOBALAMIN
  14. ARICEPT [Concomitant]
     Active Substance: DONEPEZIL HYDROCHLORIDE
  15. LANTUS [Concomitant]
     Active Substance: INSULIN GLARGINE
  16. VITAMIN D3 [Concomitant]
     Active Substance: CHOLECALCIFEROL
  17. ZYRTEC [Concomitant]
     Active Substance: CETIRIZINE HYDROCHLORIDE
  18. COUMADIN [Concomitant]
     Active Substance: WARFARIN SODIUM
  19. ACID CONTROLLER [Concomitant]
     Active Substance: FAMOTIDINE
  20. RISPERDAL [Concomitant]
     Active Substance: RISPERIDONE
  21. EPIPEN [Concomitant]
     Active Substance: EPINEPHRINE
  22. FOLIC ACID. [Concomitant]
     Active Substance: FOLIC ACID
  23. CLONIDINE. [Concomitant]
     Active Substance: CLONIDINE

REACTIONS (3)
  - Hyperglycaemia [Unknown]
  - Activities of daily living impaired [Unknown]
  - Asthenia [Unknown]
